FAERS Safety Report 8865645 (Version 1)
Quarter: 2012Q4

REPORT INFORMATION
  Report Type: 
  Country: US (occurrence: US)
  Receive Date: 20121024
  Receipt Date: 20121024
  Transmission Date: 20130627
  Serious: No
  Sender: FDA-Public Use
  Company Number: US-AMGEN-USASP2012004234

PATIENT
  Age: 43 Year
  Sex: Female

DRUGS (7)
  1. ENBREL [Suspect]
     Indication: PRODUCT USED FOR UNKNOWN INDICATION
     Dosage: 50 mg, qwk
  2. METHOTREXATE [Concomitant]
     Dosage: 25 mg, UNK
  3. LEVOTHYROXIN [Concomitant]
  4. FOLIC ACID [Concomitant]
  5. CALCIUM [Concomitant]
  6. VITAMIN D3 [Concomitant]
  7. VITAMIN B12                        /00056201/ [Concomitant]

REACTIONS (9)
  - Muscular weakness [Unknown]
  - Hypoaesthesia [Unknown]
  - Pain in extremity [Unknown]
  - Musculoskeletal pain [Unknown]
  - Pollakiuria [Unknown]
  - Asthenia [Unknown]
  - Back pain [Unknown]
  - Insomnia [Unknown]
  - Injection site reaction [Unknown]
